FAERS Safety Report 20345055 (Version 1)
Quarter: 2022Q1

REPORT INFORMATION
  Report Type: Spontaneous
  Country: US (occurrence: None)
  Receive Date: 20220114
  Receipt Date: 20220114
  Transmission Date: 20220423
  Serious: Yes (Death)
  Sender: FDA-Public Use
  Company Number: None

PATIENT
  Sex: Female

DRUGS (1)
  1. PROLIA [Suspect]
     Active Substance: DENOSUMAB
     Indication: Osteoporosis
     Dosage: 60 MG/ML?INJECT ONE SYRINGE UNDER THE SKIN (SUBCUTANEOUS INJECTION) ONCE EVERY 180 DAYS
     Route: 058
     Dates: start: 20210629

REACTIONS (1)
  - Death [None]
